FAERS Safety Report 4775110-X (Version None)
Quarter: 2005Q3

REPORT INFORMATION
  Report Type: 
  Country: None (occurrence: None)
  Receive Date: 20050919
  Receipt Date: 20050913
  Transmission Date: 20060218
  Serious: Yes (Other)
  Sender: FDA-Public Use
  Company Number: CHPA2005US02892

PATIENT
  Age: 48 Year
  Sex: Female
  Weight: 61.2 kg

DRUGS (5)
  1. CONTROL STEP 1 21MG (NCH)(NICOTINE) TRANS-THERAPEUTIC-SYSTEM [Suspect]
     Indication: SMOKING CESSATION THERAPY
     Dosage: 21 MG, QD, TRANSDERMAL
     Route: 062
     Dates: start: 20050912
  2. LOTREL [Concomitant]
  3. TOPROL-XL [Concomitant]
  4. ACIPHEX [Concomitant]
  5. PREMARIN [Concomitant]

REACTIONS (6)
  - ABDOMINAL PAIN UPPER [None]
  - DIZZINESS [None]
  - FEELING COLD [None]
  - HAEMATEMESIS [None]
  - PALLOR [None]
  - VOMITING [None]
